FAERS Safety Report 14933806 (Version 1)
Quarter: 2018Q2

REPORT INFORMATION
  Report Type: Spontaneous
  Country: US (occurrence: US)
  Receive Date: 20180524
  Receipt Date: 20180524
  Transmission Date: 20180711
  Serious: Yes (Other)
  Sender: FDA-Public Use
  Company Number: US-TARO-2017TAR00964

PATIENT
  Age: 10 Month
  Sex: Male

DRUGS (3)
  1. UNSPECIFIED ANTIBIOTICS [Concomitant]
     Active Substance: UNSPECIFIED INGREDIENT
  2. FEVERALL INFANTS [Suspect]
     Active Substance: ACETAMINOPHEN
     Indication: PYREXIA
     Dosage: UNK
     Dates: start: 20171106
  3. UNSPECIFIED ANTIHISTAMINE [Concomitant]
     Active Substance: ANTIHISTAMINES NOS

REACTIONS (1)
  - Drug effect incomplete [Not Recovered/Not Resolved]

NARRATIVE: CASE EVENT DATE: 20171106
